FAERS Safety Report 8330265-5 (Version None)
Quarter: 2012Q2

REPORT INFORMATION
  Report Type: 
  Country: None (occurrence: None)
  Receive Date: 20120502
  Receipt Date: 20120417
  Transmission Date: 20120825
  Serious: Yes (Other)
  Sender: FDA-Public Use
  Company Number: CHPA2012US009613

PATIENT
  Age: 68 Year
  Sex: Female

DRUGS (1)
  1. EXCEDRIN EXTRA STRENGTH TABLETS [Suspect]
     Indication: HEADACHE
     Dosage: 1 DF, PRN
     Route: 048
     Dates: start: 19640101

REACTIONS (6)
  - PSORIASIS [None]
  - OCULAR HYPERAEMIA [None]
  - HYPERSENSITIVITY [None]
  - CATARACT [None]
  - GINGIVAL SWELLING [None]
  - UNDERDOSE [None]
